FAERS Safety Report 17004417 (Version 1)
Quarter: 2019Q4

REPORT INFORMATION
  Report Type: Spontaneous
  Country: US (occurrence: US)
  Receive Date: 20191107
  Receipt Date: 20191107
  Transmission Date: 20200122
  Serious: No
  Sender: FDA-Public Use
  Company Number: US-GLAXOSMITHKLINE-US2019AMR196935

PATIENT

DRUGS (2)
  1. SYMBICORT [Suspect]
     Active Substance: BUDESONIDE\FORMOTEROL FUMARATE DIHYDRATE
     Indication: ASTHMA
     Dosage: UNK
     Route: 065
  2. VENTOLIN [Suspect]
     Active Substance: ALBUTEROL SULFATE
     Indication: ASTHMA
     Dosage: UNK
     Route: 065
     Dates: start: 1989

REACTIONS (11)
  - Tooth infection [Unknown]
  - Tooth fracture [Unknown]
  - Root canal infection [Unknown]
  - Tooth disorder [Unknown]
  - Endodontic procedure [Unknown]
  - Teeth brittle [Unknown]
  - Dental caries [Unknown]
  - Artificial crown procedure [Unknown]
  - Device failure [Unknown]
  - Wisdom teeth removal [Unknown]
  - Tooth repair [Unknown]
